FAERS Safety Report 8157370 (Version 4)
Quarter: 2013Q1

REPORT INFORMATION
  Report Type: Spontaneous
  Country: US (occurrence: US)
  Receive Date: 20110927
  Receipt Date: 20130221
  Transmission Date: 20140127
  Serious: Yes (Other)
  Sender: FDA-Public Use
  Company Number: US-ASTRAZENECA-2010SE11313

PATIENT
  Age: 23222 Day
  Sex: Female
  Weight: 121.1 kg

DRUGS (30)
  1. SEROQUEL [Suspect]
     Indication: BIPOLAR DISORDER
     Route: 048
     Dates: start: 2008, end: 20100307
  2. SEROQUEL [Suspect]
     Indication: PANIC ATTACK
     Route: 048
     Dates: start: 2008, end: 20100307
  3. SEROQUEL [Suspect]
     Indication: ANXIETY
     Route: 048
     Dates: start: 2008, end: 20100307
  4. SEROQUEL [Suspect]
     Indication: BIPOLAR DISORDER
     Route: 048
     Dates: start: 20100308
  5. SEROQUEL [Suspect]
     Indication: PANIC ATTACK
     Route: 048
     Dates: start: 20100308
  6. SEROQUEL [Suspect]
     Indication: ANXIETY
     Route: 048
     Dates: start: 20100308
  7. SEROQUEL [Suspect]
     Indication: BIPOLAR DISORDER
     Route: 048
     Dates: end: 201301
  8. SEROQUEL [Suspect]
     Indication: PANIC ATTACK
     Route: 048
     Dates: end: 201301
  9. SEROQUEL [Suspect]
     Indication: ANXIETY
     Route: 048
     Dates: end: 201301
  10. SEROQUEL [Suspect]
     Indication: BIPOLAR DISORDER
     Dosage: 100 MG TID, GENERIC
     Route: 048
     Dates: start: 201301
  11. SEROQUEL [Suspect]
     Indication: PANIC ATTACK
     Dosage: 100 MG TID, GENERIC
     Route: 048
     Dates: start: 201301
  12. SEROQUEL [Suspect]
     Indication: ANXIETY
     Dosage: 100 MG TID, GENERIC
     Route: 048
     Dates: start: 201301
  13. SEROQUEL [Suspect]
     Indication: BIPOLAR DISORDER
     Route: 048
  14. SEROQUEL [Suspect]
     Indication: PANIC ATTACK
     Route: 048
  15. SEROQUEL [Suspect]
     Indication: ANXIETY
     Route: 048
  16. CRESTOR [Suspect]
     Indication: HYPERCHOLESTEROLAEMIA
     Route: 048
  17. LOVASTATIN [Concomitant]
     Indication: BLOOD CHOLESTEROL ABNORMAL
  18. FENTANYL [Concomitant]
     Indication: PAIN
  19. LIDOCAINE [Concomitant]
     Indication: PAIN
     Route: 061
  20. VALIUM [Concomitant]
     Indication: CONVULSION
     Route: 048
     Dates: end: 201301
  21. VALIUM [Concomitant]
     Indication: PANIC ATTACK
     Route: 048
     Dates: end: 201301
  22. VALIUM [Concomitant]
     Indication: NERVOUSNESS
     Route: 048
     Dates: end: 201301
  23. OXYCODONE [Concomitant]
     Indication: PAIN
     Dosage: 5 MG/3  25 MG, Q4-6H
  24. PLAVIX [Concomitant]
     Indication: THROMBOSIS
     Route: 048
  25. PLAVIX [Concomitant]
     Indication: PHLEBITIS
     Route: 048
  26. ENALAPRIL [Concomitant]
     Indication: HYPERTENSION
     Route: 048
  27. HYDROCHOLOROTHYZIDE [Concomitant]
     Indication: HYPERTENSION
     Route: 048
  28. HYDROCHOLOROTHYZIDE [Concomitant]
     Indication: POLYURIA
     Route: 048
  29. PERCOCET [Concomitant]
     Indication: PAIN
     Dosage: 25/10 BID
     Route: 048
  30. PREDNISONE [Concomitant]
     Indication: PAIN
     Dates: end: 201302

REACTIONS (25)
  - Fall [Unknown]
  - Convulsion [Unknown]
  - Insomnia [Unknown]
  - Emotional distress [Unknown]
  - Malaise [Unknown]
  - Hyperhidrosis [Unknown]
  - Panic reaction [Unknown]
  - Limb injury [Unknown]
  - Panic attack [Recovered/Resolved]
  - Depressed mood [Unknown]
  - Arthralgia [Unknown]
  - Stress [Unknown]
  - Spinal disorder [Unknown]
  - Accident [Unknown]
  - Feeling abnormal [Unknown]
  - Agitation [Unknown]
  - Ear pain [Unknown]
  - Ear discomfort [Unknown]
  - Neck pain [Unknown]
  - Musculoskeletal pain [Unknown]
  - Head discomfort [Unknown]
  - Dizziness [Unknown]
  - Therapeutic response unexpected [Unknown]
  - Drug dose omission [Unknown]
  - Drug ineffective [Unknown]
